FAERS Safety Report 21641396 (Version 1)
Quarter: 2022Q4

REPORT INFORMATION
  Report Type: Spontaneous
  Country: CZ (occurrence: CZ)
  Receive Date: 20221125
  Receipt Date: 20221125
  Transmission Date: 20230113
  Serious: Yes (Hospitalization, Other)
  Sender: FDA-Public Use
  Company Number: CZ-LESVI-2022005374

PATIENT
  Age: 71 Year
  Sex: Female

DRUGS (4)
  1. OLANZAPINE [Suspect]
     Active Substance: OLANZAPINE
     Indication: Hallucination
     Dosage: 5 MG (INCREAD E TO 7,5 MG/ DAILY)
     Route: 065
  2. OLANZAPINE [Suspect]
     Active Substance: OLANZAPINE
     Dosage: 7 MG
     Route: 065
  3. CALTRATE [Concomitant]
     Active Substance: CALCIUM CARBONATE
     Indication: Product used for unknown indication
     Dosage: UNK
     Route: 065
  4. VIGANTOL [Concomitant]
     Indication: Product used for unknown indication
     Dosage: UNK
     Route: 065

REACTIONS (10)
  - Dementia [Unknown]
  - Hypothermia [Unknown]
  - Condition aggravated [Unknown]
  - Aggression [Unknown]
  - Paranoia [Unknown]
  - Confusional state [Unknown]
  - Multimorbidity [Unknown]
  - Delusion [Unknown]
  - Product use issue [Unknown]
  - Medication error [Unknown]
